FAERS Safety Report 18310123 (Version 4)
Quarter: 2021Q1

REPORT INFORMATION
  Report Type: Report from Study
  Country: US (occurrence: US)
  Receive Date: 20200924
  Receipt Date: 20210311
  Transmission Date: 20210419
  Serious: No
  Sender: FDA-Public Use
  Company Number: NVSC2020US260954

PATIENT
  Sex: Male

DRUGS (1)
  1. COSENTYX [Suspect]
     Active Substance: SECUKINUMAB
     Indication: PSORIASIS
     Dosage: 300 MG, OTHER (ONCE IN A WEEK FOR 5 WEEKS AND THEN Q4 WEEKS)
     Route: 058

REACTIONS (2)
  - Therapeutic product effect incomplete [Recovering/Resolving]
  - Psoriasis [Not Recovered/Not Resolved]
